FAERS Safety Report 16091190 (Version 1)
Quarter: 2019Q1

REPORT INFORMATION
  Report Type: Spontaneous
  Country: US (occurrence: US)
  Receive Date: 20190319
  Receipt Date: 20190319
  Transmission Date: 20190418
  Serious: No
  Sender: FDA-Public Use
  Company Number: US-AQUA PHARMACEUTICALS-2019AQU000001

PATIENT

DRUGS (1)
  1. ACZONE [Suspect]
     Active Substance: DAPSONE
     Indication: ACNE
     Dosage: UNK, QD
     Route: 061
     Dates: start: 20181207, end: 20181221

REACTIONS (5)
  - Application site pain [Recovered/Resolved]
  - Drug hypersensitivity [Recovering/Resolving]
  - Application site swelling [Recovered/Resolved]
  - Inappropriate schedule of product administration [Unknown]
  - Application site erythema [Recovered/Resolved]

NARRATIVE: CASE EVENT DATE: 201812
